FAERS Safety Report 8267682-8 (Version None)
Quarter: 2012Q2

REPORT INFORMATION
  Report Type: 
  Country: None (occurrence: None)
  Receive Date: 20120409
  Receipt Date: 20120330
  Transmission Date: 20120825
  Serious: Yes (Hospitalization)
  Sender: FDA-Public Use
  Company Number: BE-JNJFOC-20120206617

PATIENT
  Sex: Female
  Weight: 88.5 kg

DRUGS (4)
  1. PALIPERIDONE [Suspect]
     Indication: PRODUCT USED FOR UNKNOWN INDICATION
     Route: 030
     Dates: start: 20111231
  2. DEPO-PROVERA [Concomitant]
     Indication: CONTRACEPTION
     Dates: start: 20111008
  3. PALIPERIDONE [Suspect]
     Route: 030
     Dates: start: 20111104
  4. MEDROL [Concomitant]
     Indication: CHRONIC OBSTRUCTIVE PULMONARY DISEASE
     Dates: start: 20100101

REACTIONS (1)
  - DELUSION [None]
